FAERS Safety Report 17727313 (Version 2)
Quarter: 2020Q2

REPORT INFORMATION
  Report Type: Spontaneous
  Country: US (occurrence: US)
  Receive Date: 20200430
  Receipt Date: 20200616
  Transmission Date: 20200714
  Serious: Yes (Other)
  Sender: FDA-Public Use
  Company Number: US-ADVANZ PHARMA-GSH201902-000459

PATIENT

DRUGS (2)
  1. LOSARTAN. [Concomitant]
     Active Substance: LOSARTAN
     Indication: HYPERTENSION
     Dosage: 100 MG, QD
  2. HYDROXYCHLOROQUINE [Suspect]
     Active Substance: HYDROXYCHLOROQUINE
     Indication: PERICARDITIS
     Dosage: 200 MG, QD
     Route: 065

REACTIONS (4)
  - Myopathy toxic [Recovering/Resolving]
  - Muscular weakness [Recovering/Resolving]
  - Neuromyopathy [Recovered/Resolved]
  - Weight decreased [Unknown]
